FAERS Safety Report 16838860 (Version 1)
Quarter: 2019Q3

REPORT INFORMATION
  Report Type: Spontaneous
  Country: US (occurrence: US)
  Receive Date: 20190731
  Receipt Date: 20190731
  Transmission Date: 20191005
  Serious: No
  Sender: FDA-Public Use
  Company Number: None

PATIENT
  Age: 56 Year
  Sex: Female

DRUGS (1)
  1. ENBREL [Suspect]
     Active Substance: ETANERCEPT
     Dates: start: 201712

REACTIONS (4)
  - Cough [None]
  - Chest discomfort [None]
  - Dry eye [None]
  - Fatigue [None]

NARRATIVE: CASE EVENT DATE: 20190731
